FAERS Safety Report 20567746 (Version 1)
Quarter: 2022Q1

REPORT INFORMATION
  Report Type: Report from Study
  Country: FR (occurrence: None)
  Receive Date: 20220308
  Receipt Date: 20220308
  Transmission Date: 20220424
  Serious: Yes (Hospitalization)
  Sender: FDA-Public Use
  Company Number: FR-ROCHE-3038708

PATIENT
  Age: 58 Year
  Sex: Female

DRUGS (6)
  1. ATEZOLIZUMAB [Suspect]
     Active Substance: ATEZOLIZUMAB
     Indication: Anal squamous cell carcinoma
     Dosage: ON 14/APR/2020, RECEIVED LAST DOSE OF ATEZOLIZUMAB 780 MG PRIOR TO EVENT ONSET
     Route: 041
     Dates: start: 20200106
  2. DOCETAXEL [Suspect]
     Active Substance: DOCETAXEL
     Indication: Anal squamous cell carcinoma
     Dosage: ON 14/APR/2020,RECEIVED LAST DOSE OF DOCETAXEL 40 MG/M2 (74 MG) PRIOR TO EVENT ONSET
     Route: 065
     Dates: start: 20200106
  3. FLUOROURACIL [Suspect]
     Active Substance: FLUOROURACIL
     Indication: Anal squamous cell carcinoma
     Dosage: ON 14/APR/2020, RECEIVED LAST DOSE OF FLUOROURACIL 1200 MG/M2 (4400 MG) PRIOR TO EVENT ONSET
     Route: 065
     Dates: start: 20200106
  4. CISPLATIN [Suspect]
     Active Substance: CISPLATIN
     Indication: Anal squamous cell carcinoma
     Dosage: ON 14/APR/2020, RECEIVED LAST DOSE OF CISPLATIN 40 MG/M2 (74 MG) PRIOR TO EVENT ONSET
     Route: 065
     Dates: start: 20200106
  5. LEVOTHYROXINE [Concomitant]
     Active Substance: LEVOTHYROXINE
  6. LAMALINE [Concomitant]

REACTIONS (1)
  - Haematochezia [Recovered/Resolved]

NARRATIVE: CASE EVENT DATE: 20200425
